FAERS Safety Report 4876911-X (Version None)
Quarter: 2005Q4

REPORT INFORMATION
  Report Type: 
  Country: None (occurrence: None)
  Receive Date: 20051206
  Receipt Date: 20050803
  Transmission Date: 20060501
  Serious: No
  Sender: FDA-Public Use
  Company Number: USA0507103098

PATIENT
  Age: 64 Year
  Sex: Female

DRUGS (2)
  1. CYMBALTA [Suspect]
     Indication: DEPRESSION
     Dosage: 60 MG
     Dates: start: 20050510, end: 20050702
  2. XANAX [Concomitant]

REACTIONS (3)
  - EPISTAXIS [None]
  - FALL [None]
  - ORTHOSTATIC HYPOTENSION [None]
